FAERS Safety Report 9354759 (Version 1)
Quarter: 2013Q2

REPORT INFORMATION
  Report Type: Spontaneous
  Country: JP (occurrence: JP)
  Receive Date: 20130619
  Receipt Date: 20130619
  Transmission Date: 20140414
  Serious: Yes (Other)
  Sender: FDA-Public Use
  Company Number: JP-AMGEN-JPNSP2012080849

PATIENT
  Age: 77 Year
  Sex: Male

DRUGS (4)
  1. ARANESP [Suspect]
     Indication: NEPHROGENIC ANAEMIA
     Dosage: 60 MUG, 1X/WEEK
     Route: 042
     Dates: start: 201211
  2. ARANESP [Suspect]
     Dosage: 30 MUG, 1X/WEEK
     Route: 042
     Dates: start: 20121102
  3. ARANESP [Suspect]
     Dosage: 60 MUG, 1X/WEEK
     Route: 042
  4. ARANESP [Suspect]
     Dosage: 30 MUG, 1X/WEEK
     Route: 042

REACTIONS (1)
  - Aplasia pure red cell [Recovered/Resolved]
